FAERS Safety Report 10034393 (Version 2)
Quarter: 2014Q2

REPORT INFORMATION
  Report Type: Spontaneous
  Country: US (occurrence: None)
  Receive Date: 20140321
  Receipt Date: 20140417
  Transmission Date: 20141212
  Serious: Yes (Other)
  Sender: FDA-Public Use
  Company Number: AUR-APL-2014-03065

PATIENT
  Age: 32 Year
  Sex: Male

DRUGS (1)
  1. LOSARTAN+HYDROCHLOROTHIAZIDE (HYDROCHLOROTHIAZIDE, LOSARTAN) [Suspect]
     Indication: HYPERTENSION
     Dosage: 50/12.5 MG (1 IN 1 D), UNKNOWN

REACTIONS (1)
  - Pemphigoid [None]
